FAERS Safety Report 12348837 (Version 1)
Quarter: 2016Q2

REPORT INFORMATION
  Report Type: Spontaneous
  Country: JP (occurrence: JP)
  Receive Date: 20160509
  Receipt Date: 20160509
  Transmission Date: 20160815
  Serious: Yes (Other)
  Sender: FDA-Public Use
  Company Number: JP-HQ SPECIALTY-JP-2016INT000262

PATIENT
  Age: 63 Year
  Sex: Female

DRUGS (3)
  1. IRINOTECAN [Suspect]
     Active Substance: IRINOTECAN
     Indication: OVARIAN CLEAR CELL CARCINOMA
     Dosage: UNK
  2. APREPITANT. [Concomitant]
     Active Substance: APREPITANT
     Indication: PRODUCT USED FOR UNKNOWN INDICATION
     Dosage: UNK
  3. CISPLATIN. [Suspect]
     Active Substance: CISPLATIN
     Indication: OVARIAN CLEAR CELL CARCINOMA
     Dosage: UNK

REACTIONS (2)
  - Chest pain [Unknown]
  - Pulmonary embolism [Unknown]
